FAERS Safety Report 10081412 (Version 1)
Quarter: 2014Q2

REPORT INFORMATION
  Report Type: Spontaneous
  Country: US (occurrence: US)
  Receive Date: 20140416
  Receipt Date: 20140416
  Transmission Date: 20141212
  Serious: No
  Sender: FDA-Public Use
  Company Number: US-PFIZER INC-2014105194

PATIENT
  Age: 84 Year
  Sex: 0

DRUGS (1)
  1. NEURONTIN [Suspect]
     Indication: NEUROPATHY PERIPHERAL
     Dosage: UNK

REACTIONS (5)
  - Feeling abnormal [Unknown]
  - Limb discomfort [Unknown]
  - Hypotonia [Unknown]
  - Balance disorder [Unknown]
  - Psychiatric symptom [Unknown]
